FAERS Safety Report 10618848 (Version 1)
Quarter: 2014Q4

REPORT INFORMATION
  Report Type: Spontaneous
  Country: JP (occurrence: None)
  Receive Date: 20141125
  Receipt Date: 20141125
  Transmission Date: 20150529
  Serious: Yes (Other)
  Sender: FDA-Public Use
  Company Number: INT_00523_2014

PATIENT
  Age: 61 Year
  Sex: Male
  Weight: 49.6 kg

DRUGS (4)
  1. DEXAMETHASONE. [Concomitant]
     Active Substance: DEXAMETHASONE
  2. CISPLATIN (CISPLATIN) (HQ SPECIALTY) [Suspect]
     Active Substance: CISPLATIN
     Indication: LUNG SQUAMOUS CELL CARCINOMA STAGE III
     Dosage: 1ST COURSE
  3. DOCETAXEL (DOCETAXEL) [Suspect]
     Active Substance: DOCETAXEL
     Indication: LUNG SQUAMOUS CELL CARCINOMA STAGE III
     Dosage: 1ST COURSE
  4. GRANISETRON [Concomitant]
     Active Substance: GRANISETRON

REACTIONS (7)
  - Superior mesenteric artery syndrome [None]
  - Vomiting [None]
  - Decreased appetite [None]
  - Abdominal pain upper [None]
  - Abdominal distension [None]
  - Weight decreased [None]
  - Nausea [None]
